FAERS Safety Report 9692139 (Version 4)
Quarter: 2014Q2

REPORT INFORMATION
  Report Type: Spontaneous
  Country: US (occurrence: US)
  Receive Date: 20131118
  Receipt Date: 20140430
  Transmission Date: 20141212
  Serious: No
  Sender: FDA-Public Use
  Company Number: US-BIOGENIDEC-2013BI044061

PATIENT
  Age: 59 Year
  Sex: Female

DRUGS (3)
  1. AVONEX [Suspect]
     Indication: MULTIPLE SCLEROSIS
     Route: 030
     Dates: start: 20120917
  2. HYDROCODONE [Concomitant]
     Indication: SPINAL OSTEOARTHRITIS
  3. IBUPROFEN [Concomitant]
     Indication: PREMEDICATION

REACTIONS (16)
  - Disorientation [Recovered/Resolved]
  - Fall [Recovered/Resolved]
  - Skin abrasion [Recovered/Resolved]
  - Gait disturbance [Recovered/Resolved]
  - Wound haemorrhage [Recovered/Resolved]
  - Hypophagia [Recovered/Resolved]
  - Injection site bruising [Unknown]
  - Pain [Recovered/Resolved]
  - Fatigue [Recovered/Resolved]
  - Influenza like illness [Recovered/Resolved]
  - Feeling abnormal [Recovered/Resolved]
  - Flushing [Recovered/Resolved]
  - Chills [Recovered/Resolved]
  - Feeling hot [Unknown]
  - Nausea [Recovered/Resolved]
  - Anxiety [Recovered/Resolved]
